FAERS Safety Report 5086799-2 (Version None)
Quarter: 2006Q3

REPORT INFORMATION
  Report Type: 
  Country: None (occurrence: None)
  Receive Date: 20060823
  Receipt Date: 20060811
  Transmission Date: 20061208
  Serious: Yes (Hospitalization)
  Sender: FDA-Public Use
  Company Number: DE-SANOFI-SYNTHELABO-A04200600799

PATIENT
  Sex: Male
  Weight: 89.3 kg

DRUGS (3)
  1. PLAVIX [Suspect]
     Indication: WALLENBERG SYNDROME
     Dosage: UNK
     Route: 048
     Dates: start: 20060401
  2. CLEXANE [Concomitant]
     Indication: DRUG USE FOR UNKNOWN INDICATION
     Route: 058
  3. NEXIUM [Concomitant]
     Indication: REFLUX OESOPHAGITIS
     Dosage: 40 MG
     Route: 048
     Dates: start: 20060401

REACTIONS (5)
  - DYSPEPSIA [None]
  - DYSPHAGIA [None]
  - HAEMATEMESIS [None]
  - LEUKOCYTOSIS [None]
  - OESOPHAGITIS [None]
